FAERS Safety Report 6574555-5 (Version None)
Quarter: 2010Q1

REPORT INFORMATION
  Report Type: 
  Country: None (occurrence: None)
  Receive Date: 20100209
  Receipt Date: 20090911
  Transmission Date: 20100710
  Serious: No
  Sender: FDA-Public Use
  Company Number: A0806915A

PATIENT
  Age: 73 Year
  Sex: Male

DRUGS (3)
  1. PAXIL CR [Suspect]
     Dosage: 12.5MG TWICE PER DAY
     Route: 048
     Dates: start: 20040101
  2. SIMVASTATIN [Concomitant]
  3. BABY ASPIRIN [Concomitant]

REACTIONS (8)
  - ANXIETY [None]
  - BURNING SENSATION [None]
  - DEPRESSION [None]
  - DISCOMFORT [None]
  - DRUG ADMINISTRATION ERROR [None]
  - DYSPEPSIA [None]
  - HYPERHIDROSIS [None]
  - NERVOUS SYSTEM DISORDER [None]
